FAERS Safety Report 8136026-4 (Version None)
Quarter: 2012Q1

REPORT INFORMATION
  Report Type: 
  Country: None (occurrence: None)
  Receive Date: 20120214
  Receipt Date: 20120210
  Transmission Date: 20120608
  Serious: No
  Sender: FDA-Public Use
  Company Number: US-PFIZER INC-2012037311

PATIENT
  Sex: Female
  Weight: 79.365 kg

DRUGS (3)
  1. FENTANYL [Suspect]
     Indication: NEURALGIA
     Dosage: UNK, ONE PATCH EVERY 3 DAYS
     Route: 062
  2. LYRICA [Suspect]
     Indication: DIABETIC NEUROPATHY
     Dosage: 50 MG, 3X/DAY
     Route: 048
     Dates: start: 20070912
  3. PRAVASTATIN [Concomitant]
     Indication: BLOOD CHOLESTEROL INCREASED
     Dosage: 40 MG, DAILY

REACTIONS (3)
  - DRUG INEFFECTIVE [None]
  - NEURALGIA [None]
  - INSOMNIA [None]
